FAERS Safety Report 25755818 (Version 1)
Quarter: 2025Q3

REPORT INFORMATION
  Report Type: Spontaneous
  Country: CN (occurrence: CN)
  Receive Date: 20250903
  Receipt Date: 20250903
  Transmission Date: 20251021
  Serious: Yes (Hospitalization)
  Sender: NOVARTIS
  Company Number: CN-002147023-NVSC2025CN133446

PATIENT
  Age: 77 Year
  Sex: Female
  Weight: 63 kg

DRUGS (1)
  1. CARBAMAZEPINE [Suspect]
     Active Substance: CARBAMAZEPINE
     Indication: Neuralgia
     Dosage: 0.3 G, BID
     Route: 048
     Dates: start: 20250625, end: 20250809

REACTIONS (6)
  - Dizziness [Recovered/Resolved]
  - Dermatitis allergic [Recovered/Resolved]
  - Visual impairment [Unknown]
  - Gait disturbance [Unknown]
  - Dysstasia [Unknown]
  - Tremor [Unknown]

NARRATIVE: CASE EVENT DATE: 20250809
